FAERS Safety Report 9349735 (Version 2)
Quarter: 2013Q3

REPORT INFORMATION
  Report Type: Spontaneous
  Country: JP (occurrence: JP)
  Receive Date: 20130614
  Receipt Date: 20130718
  Transmission Date: 20140515
  Serious: Yes (Other)
  Sender: FDA-Public Use
  Company Number: JP-PFIZER INC-2013178065

PATIENT
  Age: 9 Decade
  Sex: Male

DRUGS (2)
  1. CELECOX [Suspect]
     Dosage: AT NIGHT
     Route: 048
     Dates: start: 20130605
  2. SUNRYTHM [Concomitant]
     Dosage: UNK

REACTIONS (1)
  - Atrial fibrillation [Recovered/Resolved]
